FAERS Safety Report 11658857 (Version 2)
Quarter: 2015Q4

REPORT INFORMATION
  Report Type: Spontaneous
  Country: SE (occurrence: SE)
  Receive Date: 20151026
  Receipt Date: 20151027
  Transmission Date: 20160304
  Serious: Yes (Hospitalization, Other)
  Sender: FDA-Public Use
  Company Number: PHHY2015SE125563

PATIENT
  Age: 16 Year
  Sex: Male
  Weight: 65.5 kg

DRUGS (2)
  1. PSEUDOEPHEDRINE [Suspect]
     Active Substance: PSEUDOEPHEDRINE
     Indication: SUBSTANCE USE
     Route: 065
  2. DEXTROMETHORPHAN [Suspect]
     Active Substance: DEXTROMETHORPHAN
     Indication: SUBSTANCE USE
     Route: 065

REACTIONS (5)
  - Dystonia [Unknown]
  - Insomnia [Unknown]
  - Social avoidant behaviour [Unknown]
  - Psychotic disorder [Unknown]
  - Intentional product misuse [Unknown]
